FAERS Safety Report 25254492 (Version 2)
Quarter: 2025Q2

REPORT INFORMATION
  Report Type: Spontaneous
  Country: US (occurrence: US)
  Receive Date: 20250430
  Receipt Date: 20250515
  Transmission Date: 20250717
  Serious: Yes (Death, Hospitalization, Other)
  Sender: TEVA
  Company Number: US-TEVA-VS-3324415

PATIENT
  Age: 70 Year
  Sex: Female

DRUGS (7)
  1. DOXORUBICIN [Suspect]
     Active Substance: DOXORUBICIN
     Indication: ROS1 gene rearrangement
     Route: 042
  2. PACLITAXEL [Suspect]
     Active Substance: PACLITAXEL
     Indication: ROS1 gene rearrangement
     Route: 065
  3. CRIZOTINIB [Suspect]
     Active Substance: CRIZOTINIB
     Indication: ROS1 gene rearrangement
     Route: 065
  4. CERITINIB [Suspect]
     Active Substance: CERITINIB
     Indication: ROS1 gene rearrangement
     Route: 065
  5. CABOZANTINIB [Suspect]
     Active Substance: CABOZANTINIB
     Indication: ROS1 gene rearrangement
     Route: 065
  6. CABOZANTINIB [Suspect]
     Active Substance: CABOZANTINIB
     Indication: ROS1 gene rearrangement
     Route: 065
  7. CABOZANTINIB [Suspect]
     Active Substance: CABOZANTINIB
     Indication: ROS1 gene rearrangement
     Route: 065

REACTIONS (7)
  - Pneumonitis [Recovered/Resolved]
  - Drug resistance [Fatal]
  - Off label use [Unknown]
  - Asthenia [Unknown]
  - Drug ineffective [Fatal]
  - Mucosal inflammation [Unknown]
  - Fatigue [Unknown]
